FAERS Safety Report 9967127 (Version 2)
Quarter: 2014Q1

REPORT INFORMATION
  Report Type: Report from Study
  Country: PR (occurrence: PR)
  Receive Date: 20140305
  Receipt Date: 20140305
  Transmission Date: 20141002
  Serious: No
  Sender: FDA-Public Use
  Company Number: PR-ABBVIE-13P-131-1110042-00

PATIENT
  Age: 54 Year
  Sex: Female
  Weight: 89.89 kg

DRUGS (9)
  1. HUMIRA [Suspect]
     Indication: RHEUMATOID ARTHRITIS
     Route: 058
     Dates: end: 201303
  2. ENBREL [Concomitant]
     Indication: RHEUMATOID ARTHRITIS
     Dates: start: 201304
  3. LABETALOL [Concomitant]
     Indication: HYPERTENSION
     Route: 048
     Dates: start: 20130702
  4. LYRICA [Concomitant]
     Indication: FIBROMYALGIA
     Dosage: 1 TABLET DAILY AS NEEDED
     Route: 048
     Dates: start: 201212
  5. PERCOCET [Concomitant]
     Indication: FIBROMYALGIA
     Dosage: 325-975MGS DAILY, 1-3 TAB EVERY 8 HRS AS NEEDED
     Route: 048
     Dates: start: 2010
  6. PERCOCET [Concomitant]
     Indication: HEADACHE
  7. METHOTREXATE [Concomitant]
     Indication: RHEUMATOID ARTHRITIS
     Dosage: 5 TABLETS TWICE IN A MONTH
     Route: 048
     Dates: start: 2010
  8. PLAQUENIL [Concomitant]
     Indication: RHEUMATOID ARTHRITIS
     Dosage: 1 TABLET DAILY AS NEEDED
     Dates: start: 2010
  9. FIORICET [Concomitant]
     Indication: HEADACHE
     Dosage: 325-975MG DAILY (1 TAB Q8HR PRN) AS NEEDED
     Dates: start: 2010

REACTIONS (1)
  - Nasopharyngitis [Recovered/Resolved]
